FAERS Safety Report 4752439-2 (Version None)
Quarter: 2005Q3

REPORT INFORMATION
  Report Type: 
  Country: None (occurrence: None)
  Receive Date: 20050823
  Receipt Date: 20050811
  Transmission Date: 20060218
  Serious: Yes (Other)
  Sender: FDA-Public Use
  Company Number: FR_041205395

PATIENT
  Age: 66 Year
  Sex: Female
  Weight: 56 kg

DRUGS (7)
  1. FORTEO [Suspect]
     Indication: OSTEOPOROSIS
     Dosage: 20 UG/1 DAY
     Dates: start: 20040901
  2. CRESTOR [Concomitant]
  3. ISKEDYL [Concomitant]
  4. VASTAREL (TRIMETAZIDINE HYDROCHLORIDE) [Concomitant]
  5. NEXIUM [Concomitant]
  6. EFFEXOR [Concomitant]
  7. ESIDRIX [Concomitant]

REACTIONS (1)
  - CALCULUS URINARY [None]
